FAERS Safety Report 9159660 (Version 2)
Quarter: 2013Q1

REPORT INFORMATION
  Report Type: Spontaneous
  Country: US (occurrence: US)
  Receive Date: 20130313
  Receipt Date: 20130326
  Transmission Date: 20140127
  Serious: No
  Sender: FDA-Public Use
  Company Number: US-ELI_LILLY_AND_COMPANY-US201303001528

PATIENT
  Age: 86 Year
  Sex: Male

DRUGS (8)
  1. CIALIS [Suspect]
     Indication: ERECTILE DYSFUNCTION
     Dosage: 20 MG, PRN
     Route: 048
     Dates: start: 20130301
  2. CHLORTHALIDONE [Concomitant]
  3. ATENOLOL [Concomitant]
  4. PRILOSEC [Concomitant]
  5. BABY ASPIRIN [Concomitant]
     Dosage: 82 MG, QD
  6. ALLOPURINOL [Concomitant]
  7. SIMVASTATIN [Concomitant]
  8. LISINOPRIL [Concomitant]

REACTIONS (4)
  - Abnormal sensation in eye [Unknown]
  - Tinnitus [Recovered/Resolved]
  - Vision blurred [Recovering/Resolving]
  - Dizziness [Unknown]
